FAERS Safety Report 19367289 (Version 5)
Quarter: 2022Q2

REPORT INFORMATION
  Report Type: Report from Study
  Country: US (occurrence: US)
  Receive Date: 20210602
  Receipt Date: 20220404
  Transmission Date: 20220720
  Serious: Yes (Hospitalization, Other)
  Sender: FDA-Public Use
  Company Number: US-TAKEDA-US202003716

PATIENT
  Age: 66 Year
  Weight: 108.84 kg

DRUGS (28)
  1. PARATHYROID HORMONE [Suspect]
     Active Substance: PARATHYROID HORMONE
     Indication: Hypoparathyroidism
     Dosage: 50 MICROGRAM, QD
     Route: 065
     Dates: start: 20160721, end: 20170308
  2. PARATHYROID HORMONE [Suspect]
     Active Substance: PARATHYROID HORMONE
     Indication: Hypoparathyroidism
     Dosage: 50 MICROGRAM, QD
     Route: 065
     Dates: start: 20160721, end: 20170308
  3. PARATHYROID HORMONE [Suspect]
     Active Substance: PARATHYROID HORMONE
     Indication: Hypoparathyroidism
     Dosage: 50 MICROGRAM, QD
     Route: 065
     Dates: start: 20160721, end: 20170308
  4. PARATHYROID HORMONE [Suspect]
     Active Substance: PARATHYROID HORMONE
     Dosage: 75 MICROGRAM, QD
     Route: 065
     Dates: start: 20170309, end: 20171017
  5. PARATHYROID HORMONE [Suspect]
     Active Substance: PARATHYROID HORMONE
     Dosage: 75 MICROGRAM, QD
     Route: 065
     Dates: start: 20170309, end: 20171017
  6. PARATHYROID HORMONE [Suspect]
     Active Substance: PARATHYROID HORMONE
     Dosage: 75 MICROGRAM, QD
     Route: 065
     Dates: start: 20170309, end: 20171017
  7. PARATHYROID HORMONE [Suspect]
     Active Substance: PARATHYROID HORMONE
     Dosage: 100 MICROGRAM, QD
     Route: 065
     Dates: start: 20171017, end: 20180205
  8. PARATHYROID HORMONE [Suspect]
     Active Substance: PARATHYROID HORMONE
     Dosage: 100 MICROGRAM, QD
     Route: 065
     Dates: start: 20171017, end: 20180205
  9. PARATHYROID HORMONE [Suspect]
     Active Substance: PARATHYROID HORMONE
     Dosage: 100 MICROGRAM, QD
     Route: 065
     Dates: start: 20171017, end: 20180205
  10. PARATHYROID HORMONE [Suspect]
     Active Substance: PARATHYROID HORMONE
     Dosage: 75 MICROGRAM, QD
     Route: 065
     Dates: start: 20180206
  11. PARATHYROID HORMONE [Suspect]
     Active Substance: PARATHYROID HORMONE
     Dosage: 75 MICROGRAM, QD
     Route: 065
     Dates: start: 20180206
  12. PARATHYROID HORMONE [Suspect]
     Active Substance: PARATHYROID HORMONE
     Dosage: 75 MICROGRAM, QD
     Route: 065
     Dates: start: 20180206
  13. VENLAFAXINE [Concomitant]
     Active Substance: VENLAFAXINE HYDROCHLORIDE
     Indication: Antidepressant therapy
     Dosage: UNK
     Route: 048
     Dates: start: 20140808
  14. HYDROCHLOROTHIAZIDE [Concomitant]
     Active Substance: HYDROCHLOROTHIAZIDE
     Indication: Hypertension
     Dosage: UNK
     Route: 048
     Dates: start: 20150630
  15. MOMETASONE FUROATE [Concomitant]
     Active Substance: MOMETASONE FUROATE
     Indication: Hypersensitivity
     Dosage: UNK
     Route: 055
     Dates: start: 20160617
  16. SYNTHROID [Concomitant]
     Active Substance: LEVOTHYROXINE SODIUM
     Indication: Hypothyroidism
     Dosage: UNK
     Route: 048
     Dates: start: 20141202
  17. ARIPIPRAZOLE [Concomitant]
     Active Substance: ARIPIPRAZOLE
     Indication: Depression
     Dosage: UNK
     Route: 048
     Dates: start: 20100520
  18. DIPYRIDAMOLE [Concomitant]
     Active Substance: DIPYRIDAMOLE
     Indication: Cerebrovascular accident
     Dosage: UNK
     Route: 048
     Dates: start: 20100520
  19. VITAMINS NOS [Concomitant]
     Active Substance: VITAMINS
     Indication: Medical diet
     Dosage: UNK
     Route: 048
     Dates: start: 20131015
  20. SODIUM HYALURONATE [Concomitant]
     Active Substance: HYALURONATE SODIUM
     Indication: Osteoarthritis
     Dosage: UNK
     Route: 014
     Dates: start: 20160815
  21. ALCOHOL [Concomitant]
     Active Substance: ALCOHOL
     Dosage: UNK
     Route: 061
     Dates: start: 20160913
  22. TICAGRELOR [Concomitant]
     Active Substance: TICAGRELOR
     Indication: Cerebrovascular accident
     Dosage: UNK
     Route: 048
     Dates: start: 20180330
  23. LIDOCAINE [Concomitant]
     Active Substance: LIDOCAINE
     Indication: Back pain
     Dosage: UNK
     Route: 061
     Dates: start: 20120919
  24. IPRATROPIUM [Concomitant]
     Active Substance: IPRATROPIUM
     Indication: Cough
     Dosage: UNK
     Route: 055
     Dates: start: 20171214
  25. IPRATROPIUM [Concomitant]
     Active Substance: IPRATROPIUM
     Dosage: UNK
     Route: 055
     Dates: start: 20180309
  26. ASPIRIN [Concomitant]
     Active Substance: ASPIRIN
     Indication: Back pain
     Dosage: UNK
     Route: 048
     Dates: start: 20180330
  27. ASPIRIN [Concomitant]
     Active Substance: ASPIRIN
     Indication: Hypomagnesaemia
     Dosage: UNK
     Route: 048
     Dates: start: 20190407
  28. DICLOFENAC [Concomitant]
     Active Substance: DICLOFENAC
     Indication: Back pain
     Dosage: UNK
     Route: 048
     Dates: start: 20170420

REACTIONS (5)
  - Dehydration [Recovered/Resolved]
  - Pyelonephritis [Recovered/Resolved]
  - Hypocalcaemia [Recovered/Resolved]
  - Hypomagnesaemia [Not Recovered/Not Resolved]
  - Polyuria [Recovered/Resolved]

NARRATIVE: CASE EVENT DATE: 20190305
